FAERS Safety Report 9312914 (Version 2)
Quarter: 2013Q3

REPORT INFORMATION
  Report Type: Spontaneous
  Country: US (occurrence: US)
  Receive Date: 20130528
  Receipt Date: 20130828
  Transmission Date: 20140515
  Serious: No
  Sender: FDA-Public Use
  Company Number: US-ABBOTT-13P-163-1068627-00

PATIENT
  Sex: Male
  Weight: 129.39 kg

DRUGS (5)
  1. ANDROGEL [Suspect]
     Indication: BLOOD TESTOSTERONE DECREASED
     Dosage: 2 PUMP ACTUATIONS
     Dates: start: 201109
  2. ANDROGEL [Suspect]
     Indication: BLOOD TESTOSTERONE DECREASED
  3. COUMADIN [Concomitant]
     Indication: ATRIAL FIBRILLATION
  4. COREG [Concomitant]
     Indication: HEART RATE IRREGULAR
  5. DILTIAZEM [Concomitant]
     Indication: CARDIAC DISORDER

REACTIONS (2)
  - Wrong technique in drug usage process [Unknown]
  - Dry skin [Recovered/Resolved]
